FAERS Safety Report 6326929-5 (Version None)
Quarter: 2009Q3

REPORT INFORMATION
  Report Type: 
  Country: None (occurrence: None)
  Receive Date: 20090825
  Receipt Date: 20090820
  Transmission Date: 20100115
  Serious: Yes (Death)
  Sender: FDA-Public Use
  Company Number: IL-NOVOPROD-290804

PATIENT
  Age: 63 Year
  Sex: Male

DRUGS (2)
  1. LEVEMIR [Suspect]
     Indication: DIABETES MELLITUS
     Dosage: 30 U, QD
  2. NOVOLOG [Suspect]
     Indication: DIABETES MELLITUS
     Dosage: 10 U, TID

REACTIONS (1)
  - COMPLETED SUICIDE [None]
